FAERS Safety Report 24895021 (Version 1)
Quarter: 2025Q1

REPORT INFORMATION
  Report Type: Report from Study
  Country: US (occurrence: US)
  Receive Date: 20250128
  Receipt Date: 20250128
  Transmission Date: 20250408
  Serious: Yes (Hospitalization, Other)
  Sender: ABBVIE
  Company Number: US-ABBVIE-6104435

PATIENT
  Age: 62 Year
  Sex: Female

DRUGS (1)
  1. QULIPTA [Suspect]
     Active Substance: ATOGEPANT
     Indication: Migraine
     Route: 048

REACTIONS (2)
  - Post procedural infection [Recovering/Resolving]
  - Shoulder arthroplasty [Unknown]

NARRATIVE: CASE EVENT DATE: 20240101
